FAERS Safety Report 8996843 (Version 1)
Quarter: 2013Q1

REPORT INFORMATION
  Report Type: Spontaneous
  Country: US (occurrence: US)
  Receive Date: 20130104
  Receipt Date: 20130104
  Transmission Date: 20140127
  Serious: No
  Sender: FDA-Public Use
  Company Number: US-JNJFOC-20121213182

PATIENT
  Age: 19 Year
  Sex: Male

DRUGS (3)
  1. INVEGA [Suspect]
     Indication: PRODUCT USED FOR UNKNOWN INDICATION
     Route: 048
  2. ATENOLOL [Concomitant]
     Indication: TACHYCARDIA
     Route: 065
  3. KLONOPIN [Concomitant]
     Indication: ANXIETY
     Route: 065

REACTIONS (1)
  - Tachycardia [Recovered/Resolved]
